FAERS Safety Report 20922919 (Version 1)
Quarter: 2022Q2

REPORT INFORMATION
  Report Type: Spontaneous
  Country: JP (occurrence: JP)
  Receive Date: 20220607
  Receipt Date: 20220607
  Transmission Date: 20220721
  Serious: Yes (Hospitalization, Other)
  Sender: FDA-Public Use
  Company Number: JP-ATLANTIDE PHARMACEUTICALS AG-2022ATL000045

PATIENT
  Age: 85 Year
  Sex: Male

DRUGS (1)
  1. CEFTRIAXONE [Suspect]
     Active Substance: CEFTRIAXONE
     Indication: Gastroenteritis
     Dosage: UNK
     Route: 065

REACTIONS (1)
  - Cholecystitis infective [Recovering/Resolving]
